FAERS Safety Report 16083242 (Version 1)
Quarter: 2019Q1

REPORT INFORMATION
  Report Type: Spontaneous
  Country: US (occurrence: US)
  Receive Date: 20190318
  Receipt Date: 20190318
  Transmission Date: 20190418
  Serious: Yes (Other)
  Sender: FDA-Public Use
  Company Number: US-ROCHE-2280196

PATIENT
  Age: 2 Year
  Sex: Male
  Weight: 27 kg

DRUGS (7)
  1. CARBOPLATIN. [Concomitant]
     Active Substance: CARBOPLATIN
     Indication: ASTROCYTOMA
  2. PROCARBAZINE HYDROCHLORIDE [Concomitant]
     Active Substance: PROCARBAZINE HYDROCHLORIDE
     Indication: ASTROCYTOMA
  3. AVASTIN [Suspect]
     Active Substance: BEVACIZUMAB
     Indication: ASTROCYTOMA
     Route: 042
     Dates: start: 20160708, end: 20170105
  4. ENTRECTINIB [Suspect]
     Active Substance: ENTRECTINIB
     Indication: ASTROCYTOMA
     Dosage: ON 19/FEB/2019, HE RECEIVED THE MOST RECENT DOSE OF ENTRECTINIB PRIOR TO THE ADVERSE EVENT ONSET.
     Route: 048
     Dates: start: 20180418
  5. LOMUSTINE. [Concomitant]
     Active Substance: LOMUSTINE
     Indication: ASTROCYTOMA
  6. THIOGUANINE [Concomitant]
     Active Substance: THIOGUANINE
     Indication: ASTROCYTOMA
  7. VINCRISTINE SULFATE. [Concomitant]
     Active Substance: VINCRISTINE SULFATE
     Indication: ASTROCYTOMA

REACTIONS (6)
  - Astrocytoma surgery [Unknown]
  - Radiotherapy [Unknown]
  - Lipase increased [Recovering/Resolving]
  - Pancreatitis [Recovered/Resolved]
  - Neoplasm progression [Not Recovered/Not Resolved]
  - Tumour excision [Unknown]

NARRATIVE: CASE EVENT DATE: 20170105
